FAERS Safety Report 8167728-1 (Version None)
Quarter: 2012Q1

REPORT INFORMATION
  Report Type: 
  Country: None (occurrence: None)
  Receive Date: 20120227
  Receipt Date: 20120220
  Transmission Date: 20120608
  Serious: Yes (Hospitalization)
  Sender: FDA-Public Use
  Company Number: IT-ROCHE-795753

PATIENT
  Sex: Male

DRUGS (3)
  1. ALISPORIVIR [Suspect]
     Indication: HEPATITIS C
     Route: 048
     Dates: start: 20110719, end: 20110803
  2. PEGASYS [Suspect]
     Indication: HEPATITIS C
     Route: 058
     Dates: start: 20110722, end: 20110803
  3. COPEGUS [Suspect]
     Indication: HEPATITIS C
     Route: 048
     Dates: start: 20110719, end: 20110803

REACTIONS (3)
  - PYREXIA [None]
  - URINARY TRACT INFECTION [None]
  - RENAL COLIC [None]
